FAERS Safety Report 5165529-X (Version None)
Quarter: 2006Q4

REPORT INFORMATION
  Report Type: 
  Country: None (occurrence: None)
  Receive Date: 20061206
  Receipt Date: 20061128
  Transmission Date: 20070319
  Serious: Yes (Death, Hospitalization)
  Sender: FDA-Public Use
  Company Number: BE-ROCHE-473091

PATIENT
  Age: 62 Year
  Sex: Female

DRUGS (4)
  1. XELODA [Suspect]
     Indication: COLON CANCER
     Dosage: DOSAGE REGIMEN REPORTED AS 3/J. MONOTHERAPY.
     Route: 048
     Dates: start: 20060913, end: 20060919
  2. XELODA [Suspect]
     Dosage: DOSAGE REGIMEN REPORTED AS 2/J. MONOTHERAPY.
     Route: 048
     Dates: start: 20060920, end: 20061005
  3. IMODIUM [Concomitant]
     Dosage: REPORTED: PATIENT TOOK 12 TABS OF IMODIUM AND BUSCOPAN.
     Route: 048
  4. BUSCOPAN [Concomitant]
     Indication: NAUSEA
     Dosage: GENERIC NAME REPORTED AS BUTYLHYOSINE. REPORTED: PATIENT TOOK 12 TABS OF IMODIUM AND BUSCOPAN.

REACTIONS (5)
  - DIARRHOEA [None]
  - MUCOSAL INFLAMMATION [None]
  - NAUSEA [None]
  - NEUTROPENIA [None]
  - SEPTIC SHOCK [None]
